FAERS Safety Report 11111932 (Version 1)
Quarter: 2015Q2

REPORT INFORMATION
  Report Type: Spontaneous
  Country: US (occurrence: None)
  Receive Date: 20150513
  Receipt Date: 20150513
  Transmission Date: 20150821
  Serious: Yes (Hospitalization)
  Sender: FDA-Public Use
  Company Number: None

PATIENT
  Age: 73 Year
  Sex: Male
  Weight: 79.38 kg

DRUGS (1)
  1. XTANDI [Suspect]
     Active Substance: ENZALUTAMIDE
     Indication: PROSTATE CANCER
     Dosage: DOSE FORM: ORAL  FREQUENCY: 4 PO DAILY
     Route: 048
     Dates: start: 20150423

REACTIONS (1)
  - Kidney infection [None]

NARRATIVE: CASE EVENT DATE: 20150510
